FAERS Safety Report 13231358 (Version 2)
Quarter: 2017Q2

REPORT INFORMATION
  Report Type: Report from Study
  Country: None (occurrence: BR)
  Receive Date: 20170214
  Receipt Date: 20170502
  Transmission Date: 20170830
  Serious: Yes (Other)
  Sender: FDA-Public Use
  Company Number: BR-ABBVIE-17K-020-1866223-00

PATIENT
  Age: 67 Year
  Sex: Female
  Weight: 53 kg

DRUGS (12)
  1. VITAMIN B12 [Concomitant]
     Active Substance: CYANOCOBALAMIN
     Indication: VITAMIN SUPPLEMENTATION
     Route: 048
     Dates: start: 201611
  2. MELOXICAM. [Concomitant]
     Active Substance: MELOXICAM
     Indication: RHEUMATOID ARTHRITIS
     Route: 048
     Dates: start: 20060202, end: 201611
  3. FAMOTIDINE. [Concomitant]
     Active Substance: FAMOTIDINE
     Indication: ARTHRITIS
     Route: 048
     Dates: start: 20060202, end: 201611
  4. HUMIRA [Suspect]
     Active Substance: ADALIMUMAB
     Route: 058
     Dates: start: 20170126
  5. HUMIRA [Suspect]
     Active Substance: ADALIMUMAB
     Indication: RHEUMATOID ARTHRITIS
     Route: 058
     Dates: start: 20130131, end: 20161105
  6. TAMARINE [Suspect]
     Active Substance: HERBALS
     Indication: BOWEL MOVEMENT IRREGULARITY
     Route: 048
     Dates: start: 20060202
  7. PREDNISONE. [Concomitant]
     Active Substance: PREDNISONE
     Indication: ARTHRITIS
     Route: 048
     Dates: start: 20060202, end: 201611
  8. ETNA [Suspect]
     Active Substance: UNSPECIFIED INGREDIENT
     Indication: PAIN
     Route: 048
     Dates: start: 20161101
  9. FAMOTIDINE. [Concomitant]
     Active Substance: FAMOTIDINE
     Route: 048
     Dates: start: 20170131
  10. CALCIUM [Concomitant]
     Active Substance: CALCIUM
     Indication: OSTEOPOROSIS
     Route: 048
     Dates: start: 20040101
  11. PARACETAMOL [Suspect]
     Active Substance: ACETAMINOPHEN
     Indication: PAIN
     Route: 048
     Dates: start: 201612, end: 201701
  12. PREDNISONE. [Concomitant]
     Active Substance: PREDNISONE
     Route: 048
     Dates: start: 20170131

REACTIONS (15)
  - Gait disturbance [Recovering/Resolving]
  - Drug hypersensitivity [Recovered/Resolved]
  - Throat tightness [Recovered/Resolved]
  - Joint swelling [Recovering/Resolving]
  - Throat irritation [Recovered/Resolved]
  - Allergy to chemicals [Recovering/Resolving]
  - Gastrointestinal hypomotility [Recovering/Resolving]
  - Allergic respiratory symptom [Unknown]
  - Gastrointestinal motility disorder [Recovering/Resolving]
  - Drug hypersensitivity [Unknown]
  - Pruritus allergic [Recovering/Resolving]
  - Allergic cough [Recovered/Resolved]
  - Retching [Recovered/Resolved]
  - Erythema [Recovering/Resolving]
  - Pain [Recovering/Resolving]

NARRATIVE: CASE EVENT DATE: 201611
